FAERS Safety Report 4773556-7 (Version None)
Quarter: 2005Q3

REPORT INFORMATION
  Report Type: 
  Country: None (occurrence: None)
  Receive Date: 20050920
  Receipt Date: 20050216
  Transmission Date: 20060218
  Serious: No
  Sender: FDA-Public Use
  Company Number: US-BRISTOL-MYERS SQUIBB COMPANY-12865671

PATIENT
  Age: 72 Year
  Sex: Female
  Weight: 79 kg

DRUGS (7)
  1. BUSPAR-5 [Suspect]
  2. SYNTHROID [Concomitant]
  3. PEPCID AC [Concomitant]
  4. DICYCLOMINE [Concomitant]
  5. MECLIZINE [Concomitant]
  6. ELIDEL [Concomitant]
     Route: 061
  7. LOCOID [Concomitant]
     Route: 061

REACTIONS (2)
  - ALDOLASE INCREASED [None]
  - BLOOD CREATINE PHOSPHOKINASE INCREASED [None]
